FAERS Safety Report 25255658 (Version 1)
Quarter: 2025Q2

REPORT INFORMATION
  Report Type: Spontaneous
  Country: US (occurrence: US)
  Receive Date: 20250430
  Receipt Date: 20250430
  Transmission Date: 20250716
  Serious: Yes (Life-Threatening, Other)
  Sender: SANDOZ
  Company Number: US-002147023-NVSC2021US085230

PATIENT
  Sex: Male

DRUGS (1)
  1. TACROLIMUS [Suspect]
     Active Substance: TACROLIMUS
     Indication: Transplant rejection
     Route: 065

REACTIONS (7)
  - Schizophrenia [Unknown]
  - Scratch [Unknown]
  - Sleep deficit [Unknown]
  - Feeling abnormal [Unknown]
  - Delusion [Unknown]
  - Abnormal behaviour [Unknown]
  - Psychotic disorder [Unknown]
